FAERS Safety Report 14718598 (Version 2)
Quarter: 2018Q2

REPORT INFORMATION
  Report Type: Report from Study
  Country: JP (occurrence: JP)
  Receive Date: 20180405
  Receipt Date: 20180412
  Transmission Date: 20180711
  Serious: Yes (Other)
  Sender: FDA-Public Use
  Company Number: JP-ROCHE-2098367

PATIENT

DRUGS (7)
  1. ETOPOSIDE. [Concomitant]
     Active Substance: ETOPOSIDE
  2. RANIMUSTINE [Concomitant]
     Active Substance: RANIMUSTINE
  3. DEXAMETHASONE. [Concomitant]
     Active Substance: DEXAMETHASONE
  4. MELPHALAN. [Concomitant]
     Active Substance: MELPHALAN
  5. RITUXIMAB. [Suspect]
     Active Substance: RITUXIMAB
     Indication: LYMPHOMA
     Route: 041
  6. CYCLOPHOSPHAMIDE. [Concomitant]
     Active Substance: CYCLOPHOSPHAMIDE
  7. CYTARABINE. [Concomitant]
     Active Substance: CYTARABINE

REACTIONS (21)
  - Hyperbilirubinaemia [Unknown]
  - Malaise [Unknown]
  - Back pain [Unknown]
  - Dizziness [Unknown]
  - Transaminases increased [Unknown]
  - Dysgeusia [Unknown]
  - Blood creatinine increased [Unknown]
  - Stomatitis [Unknown]
  - Decreased appetite [Unknown]
  - Febrile neutropenia [Unknown]
  - Hypokalaemia [Unknown]
  - Diarrhoea [Unknown]
  - Nausea [Unknown]
  - Pyrexia [Unknown]
  - Hypocalcaemia [Unknown]
  - Vomiting [Unknown]
  - Headache [Unknown]
  - Hyperglycaemia [Unknown]
  - Blood alkaline phosphatase increased [Unknown]
  - Oropharyngeal pain [Unknown]
  - Hypoalbuminaemia [Unknown]
